FAERS Safety Report 5419116-6 (Version None)
Quarter: 2007Q3

REPORT INFORMATION
  Report Type: 
  Country: None (occurrence: None)
  Receive Date: 20070816
  Receipt Date: 20070816
  Transmission Date: 20080115
  Serious: No
  Sender: FDA-Public Use
  Company Number: None

PATIENT
  Age: 56 Year
  Sex: Female
  Weight: 90.7194 kg

DRUGS (12)
  1. CYMBALTA [Suspect]
     Indication: FIBROMYALGIA
     Dosage: QD PO
     Route: 048
  2. CYMBALTA [Suspect]
     Indication: PAIN
     Dosage: QD PO
     Route: 048
  3. NEURONTIN [Concomitant]
  4. LASIX [Concomitant]
  5. ENALAPRIL MALEATE [Concomitant]
  6. OXYCONTIN [Concomitant]
  7. BENZODIAZEPINE [Concomitant]
  8. OPIATES [Concomitant]
  9. MARIJUANA [Concomitant]
  10. TCA [Concomitant]
  11. AMITRIPTYLINE HCL [Concomitant]
  12. OXYCODONE HCL [Concomitant]

REACTIONS (6)
  - DRUG WITHDRAWAL SYNDROME [None]
  - HYPERHIDROSIS [None]
  - IRRITABILITY [None]
  - MUSCLE TIGHTNESS [None]
  - MYOCLONUS [None]
  - VOMITING [None]
